FAERS Safety Report 8537067 (Version 2)
Quarter: 2013Q1

REPORT INFORMATION
  Report Type: Spontaneous
  Country: US (occurrence: None)
  Receive Date: 20120420
  Receipt Date: 20121214
  Transmission Date: 20140127
  Serious: Yes (Other)
  Sender: FDA-Public Use
  Company Number: ACO_30017_2012

PATIENT
  Age: 56 Year
  Sex: Female
  Weight: 69.8 kg

DRUGS (3)
  1. AMPYRA [Suspect]
     Indication: GAIT DISTURBANCE
     Dosage: 10 MG,   ,ORAL
     Route: 048
     Dates: start: 201107, end: 201111
  2. BACLOFEN (BACLOFEN) [Concomitant]
  3. GABAPENTIN (GABAPENTIN) [Concomitant]

REACTIONS (2)
  - Ankle fracture [None]
  - Fall [None]
